FAERS Safety Report 6888027-1 (Version None)
Quarter: 2010Q3

REPORT INFORMATION
  Report Type: 
  Country: None (occurrence: None)
  Receive Date: 20100730
  Receipt Date: 20100722
  Transmission Date: 20110219
  Serious: Yes (Hospitalization)
  Sender: FDA-Public Use
  Company Number: B0666604A

PATIENT
  Age: 33 Year
  Sex: Female

DRUGS (2)
  1. FLIXOTIDE [Suspect]
     Route: 055
     Dates: start: 20100612
  2. EBASTINE [Suspect]
     Route: 048
     Dates: start: 20100612

REACTIONS (7)
  - CHEST DISCOMFORT [None]
  - COUGH [None]
  - DYSAESTHESIA [None]
  - GRAND MAL CONVULSION [None]
  - HEADACHE [None]
  - LOSS OF CONSCIOUSNESS [None]
  - PAIN IN EXTREMITY [None]
